FAERS Safety Report 16589749 (Version 1)
Quarter: 2019Q3

REPORT INFORMATION
  Report Type: Other
  Country: US (occurrence: US)
  Receive Date: 20190718
  Receipt Date: 20190718
  Transmission Date: 20191004
  Serious: No
  Sender: FDA-Public Use
  Company Number: US-SWEDISH ORPHAN BIOVITRUM-2019US0835

PATIENT
  Sex: Male

DRUGS (5)
  1. ZELBROTF [Concomitant]
  2. ACUBREL [Concomitant]
  3. KINERET [Suspect]
     Active Substance: ANAKINRA
     Indication: LANGERHANS^ CELL HISTIOCYTOSIS
     Route: 058
     Dates: start: 201904
  4. ALLOPURINOL. [Concomitant]
     Active Substance: ALLOPURINOL
  5. TESTOSTERONE. [Concomitant]
     Active Substance: TESTOSTERONE
     Route: 062

REACTIONS (4)
  - Injection site pain [Unknown]
  - Injection site erythema [Recovered/Resolved]
  - Injection site bruising [Recovered/Resolved]
  - Off label use [Not Recovered/Not Resolved]
